FAERS Safety Report 8165103-7 (Version None)
Quarter: 2012Q1

REPORT INFORMATION
  Report Type: 
  Country: None (occurrence: None)
  Receive Date: 20120227
  Receipt Date: 20120213
  Transmission Date: 20120608
  Serious: Yes (Other)
  Sender: FDA-Public Use
  Company Number: DE-RANBAXY-2012RR-52858

PATIENT
  Age: 11 Year
  Sex: Male
  Weight: 38 kg

DRUGS (1)
  1. CEFACLOR [Suspect]
     Indication: BRONCHOPNEUMONIA
     Dosage: 500 MG, TID
     Route: 048
     Dates: start: 20111215, end: 20111218

REACTIONS (6)
  - HALLUCINATION [None]
  - WEIGHT DECREASED [None]
  - APATHY [None]
  - VOMITING [None]
  - DIARRHOEA [None]
  - DECREASED APPETITE [None]
